FAERS Safety Report 10026924 (Version 1)
Quarter: 2014Q1

REPORT INFORMATION
  Report Type: Spontaneous
  Country: US (occurrence: None)
  Receive Date: 20140318
  Receipt Date: 20140318
  Transmission Date: 20141002
  Serious: Yes (Hospitalization)
  Sender: FDA-Public Use
  Company Number: AUR-APL-2014-02735

PATIENT
  Age: 15 Year
  Sex: Female

DRUGS (2)
  1. MIRTAZAPINE (MIRTAZAPINE) [Suspect]
     Indication: DEPRESSION
     Route: 048
  2. FLUVOXAMINE [Suspect]
     Indication: DEPRESSION
     Route: 048

REACTIONS (2)
  - Myoclonus [None]
  - Seizure like phenomena [None]
